FAERS Safety Report 6836379-0 (Version None)
Quarter: 2010Q3

REPORT INFORMATION
  Report Type: 
  Country: None (occurrence: None)
  Receive Date: 20100713
  Receipt Date: 20100630
  Transmission Date: 20110219
  Serious: No
  Sender: FDA-Public Use
  Company Number: IT-ELI_LILLY_AND_COMPANY-IT201005006926

PATIENT
  Age: 32 Year
  Sex: Male

DRUGS (5)
  1. ZYPREXA [Suspect]
     Indication: BIPOLAR DISORDER
     Dosage: 15 MG, DAILY (1/D)
     Dates: start: 20090101
  2. LORAZEPAM [Concomitant]
     Dosage: 5 MG, DAILY (1/D)
     Route: 048
     Dates: start: 20090101, end: 20100423
  3. LORAZEPAM [Concomitant]
     Dosage: 3 D/F, DAILY (1/D)
     Dates: start: 20100424
  4. DEPAKENE [Concomitant]
     Dates: start: 20090101, end: 20100424
  5. TOLEP [Concomitant]
     Dates: start: 20090101, end: 20100424

REACTIONS (1)
  - LEUKOPENIA [None]
